FAERS Safety Report 24177361 (Version 4)
Quarter: 2025Q2

REPORT INFORMATION
  Report Type: Report from Study
  Country: US (occurrence: US)
  Receive Date: 20240806
  Receipt Date: 20250417
  Transmission Date: 20250717
  Serious: Yes (Other)
  Sender: AVADEL CNS PHARMA
  Company Number: US-AVADEL CNS PHARMACEUTICALS, LLC-2024AVA01284

PATIENT
  Sex: Female

DRUGS (2)
  1. LUMRYZ [Suspect]
     Active Substance: SODIUM OXYBATE
     Dates: start: 20240624, end: 20240715
  2. LUMRYZ [Suspect]
     Active Substance: SODIUM OXYBATE
     Dates: end: 202503

REACTIONS (4)
  - Knee arthroplasty [Unknown]
  - Product administration interrupted [Recovered/Resolved]
  - Intentional dose omission [Recovered/Resolved]
  - Product dose omission issue [Not Recovered/Not Resolved]

NARRATIVE: CASE EVENT DATE: 20240101
